FAERS Safety Report 4773946-2 (Version None)
Quarter: 2005Q3

REPORT INFORMATION
  Report Type: 
  Country: None (occurrence: None)
  Receive Date: 20050919
  Receipt Date: 20050907
  Transmission Date: 20060218
  Serious: Yes (Hospitalization)
  Sender: FDA-Public Use
  Company Number: MEDI-0003671

PATIENT
  Age: 50 Year
  Sex: Male

DRUGS (6)
  1. ETHYOL [Suspect]
     Indication: CHEMOTHERAPY
     Dosage: RECEIVED 9 OR 10 DOSES OF ETHYOL
     Dates: start: 20041202, end: 20041214
  2. ETHYOL [Suspect]
     Indication: RADIOTHERAPY
     Dosage: RECEIVED 9 OR 10 DOSES OF ETHYOL
     Dates: start: 20041202, end: 20041214
  3. RADIATION THERAPY [Concomitant]
  4. CHEMOTHERAPY [Concomitant]
  5. NORVASC [Concomitant]
  6. ZOFRAN [Concomitant]

REACTIONS (7)
  - ASTHENIA [None]
  - DEHYDRATION [None]
  - PYREXIA [None]
  - RASH ERYTHEMATOUS [None]
  - RASH PAPULAR [None]
  - RENAL FAILURE ACUTE [None]
  - TACHYCARDIA [None]
